FAERS Safety Report 9323321 (Version 2)
Quarter: 2014Q1

REPORT INFORMATION
  Report Type: Spontaneous
  Country: US (occurrence: US)
  Receive Date: 20130603
  Receipt Date: 20140311
  Transmission Date: 20141002
  Serious: Yes (Hospitalization)
  Sender: FDA-Public Use
  Company Number: US-B.I. PHARMACEUTICALS,INC./RIDGEFIELD-2013-BI-14924BP

PATIENT
  Age: 69 Year
  Sex: Male
  Weight: 99.79 kg

DRUGS (15)
  1. PRADAXA [Suspect]
     Indication: ATRIAL FIBRILLATION
     Dosage: 300 MG
     Route: 048
     Dates: start: 20120621, end: 20120821
  2. TRIAZOLAM [Concomitant]
     Dosage: 0.25 MG
     Route: 048
  3. LIPITOR [Concomitant]
     Dosage: 10 MG
     Route: 048
     Dates: start: 201201
  4. CYCLOBENZAPRINE [Concomitant]
     Route: 048
  5. LEVOTHYROXINE [Concomitant]
     Dosage: 112 MCG
     Route: 048
  6. PROZAC [Concomitant]
     Dosage: 20 MG
     Route: 048
     Dates: start: 201007
  7. LASIX [Concomitant]
     Dosage: 40 MG
     Route: 048
     Dates: start: 201007
  8. POTASSIUM [Concomitant]
     Dosage: 10 MEQ
     Route: 048
     Dates: start: 201007
  9. CARVEDILOL [Concomitant]
     Dosage: 3.125 MEQ
     Route: 048
     Dates: start: 201202
  10. ASPIRIN [Concomitant]
     Dosage: 81 MG
     Route: 048
  11. GRAPE SEED [Concomitant]
     Dosage: 100 MG
     Route: 048
  12. CINNAMON [Concomitant]
     Dosage: 500 MG
     Route: 048
  13. JANUMET [Concomitant]
     Route: 048
     Dates: start: 201202
  14. LYRICA [Concomitant]
     Dosage: 100 MG
     Route: 065
     Dates: start: 2010
  15. DILTIAZEM [Concomitant]
     Route: 065
     Dates: start: 201007

REACTIONS (2)
  - Lower gastrointestinal haemorrhage [Unknown]
  - Haemorrhagic anaemia [Unknown]
